FAERS Safety Report 4827856-2 (Version None)
Quarter: 2005Q4

REPORT INFORMATION
  Report Type: 
  Country: None (occurrence: None)
  Receive Date: 20051115
  Receipt Date: 20051107
  Transmission Date: 20060501
  Serious: Yes (Other)
  Sender: FDA-Public Use
  Company Number: PHFR2005GB03672

PATIENT
  Sex: Male

DRUGS (1)
  1. LAMISIL [Suspect]
     Indication: TINEA CAPITIS
     Route: 065

REACTIONS (4)
  - AMNESIA [None]
  - DISORIENTATION [None]
  - FEELING ABNORMAL [None]
  - MOOD ALTERED [None]
